FAERS Safety Report 6408562-X (Version None)
Quarter: 2009Q4

REPORT INFORMATION
  Report Type: 
  Country: None (occurrence: None)
  Receive Date: 20091021
  Receipt Date: 20091014
  Transmission Date: 20100525
  Serious: Yes (Death)
  Sender: FDA-Public Use
  Company Number: FR-TEVA-212736ISR

PATIENT
  Age: 81 Year
  Sex: Female
  Weight: 57 kg

DRUGS (8)
  1. FLUOROURACIL [Suspect]
     Indication: COLORECTAL CANCER
     Route: 040
  2. FLUOROURACIL [Suspect]
     Route: 042
     Dates: start: 20070115, end: 20070115
  3. FOLINIC ACID [Suspect]
     Indication: COLORECTAL CANCER
     Dates: start: 20070115, end: 20070115
  4. ACETYLSALICYLATE LYSINE [Concomitant]
  5. CICLETANINE [Concomitant]
  6. OMEPRAZOLE [Concomitant]
  7. BISOPROLOL [Concomitant]
  8. DILTIAZEM [Concomitant]

REACTIONS (1)
  - SEPTIC SHOCK [None]
